FAERS Safety Report 4326192-0 (Version None)
Quarter: 2004Q1

REPORT INFORMATION
  Report Type: 
  Country: None (occurrence: None)
  Receive Date: 20040324
  Receipt Date: 20040309
  Transmission Date: 20041129
  Serious: Yes (Hospitalization)
  Sender: FDA-Public Use
  Company Number: 04P-087-0252899-00

PATIENT
  Age: 13 Year
  Sex: Female

DRUGS (3)
  1. AKINETON [Suspect]
     Indication: PARKINSONISM
     Dosage: 2 MG, 1 IN 1 D, PER ORAL
     Route: 048
     Dates: start: 20031003, end: 20031112
  2. TEGRETOL [Suspect]
     Indication: SCHIZOPHRENIA
     Dosage: 600 MG, 1 IN 1 D, ORAL
     Route: 048
     Dates: start: 20031003, end: 20031112
  3. RISPERIDONE [Suspect]
     Indication: SCHIZOPHRENIA
     Dosage: 2 MG, 1 IN 1 D, ORAL
     Route: 048
     Dates: start: 20031003, end: 20031112

REACTIONS (5)
  - C-REACTIVE PROTEIN INCREASED [None]
  - DRUG ERUPTION [None]
  - GENERALISED OEDEMA [None]
  - HEPATIC FUNCTION ABNORMAL [None]
  - WHITE BLOOD CELL COUNT ABNORMAL [None]
